FAERS Safety Report 14178688 (Version 5)
Quarter: 2018Q2

REPORT INFORMATION
  Report Type: Spontaneous
  Country: RU (occurrence: RU)
  Receive Date: 20171110
  Receipt Date: 20180503
  Transmission Date: 20180711
  Serious: Yes (Other)
  Sender: FDA-Public Use
  Company Number: RU-ASTRAZENECA-2017SE99757

PATIENT
  Age: 64 Year
  Sex: Male
  Weight: 70 kg

DRUGS (7)
  1. BETALOC ZOK [Interacting]
     Active Substance: METOPROLOL SUCCINATE
     Route: 048
  2. ATORVASTATIN [Interacting]
     Active Substance: ATORVASTATIN
     Route: 065
  3. BETALOC ZOK [Interacting]
     Active Substance: METOPROLOL SUCCINATE
     Dosage: DECREASED TILL 50 MG
     Route: 048
  4. ACETYLSALICYLIC ACID + MAGNESIUM HYDROXIDE [Interacting]
     Active Substance: ASPIRIN\MAGNESIUM HYDROXIDE
     Route: 065
  5. BRILINTA [Interacting]
     Active Substance: TICAGRELOR
     Indication: MYOCARDIAL INFARCTION
     Route: 048
     Dates: start: 201708
  6. OMEPRAZOLE. [Interacting]
     Active Substance: OMEPRAZOLE
     Route: 048
  7. INFLUENZA VACCINE [Suspect]
     Active Substance: INFLUENZA VIRUS VACCINE
     Route: 065
     Dates: start: 20170929

REACTIONS (9)
  - Drug interaction [Unknown]
  - Blood pressure abnormal [Recovered/Resolved]
  - Contusion [Unknown]
  - Dyspnoea exertional [Not Recovered/Not Resolved]
  - Cough [Recovered/Resolved]
  - Road traffic accident [Recovered/Resolved]
  - Epistaxis [Recovered/Resolved]
  - Loss of consciousness [Recovered/Resolved]
  - Disorientation [Unknown]

NARRATIVE: CASE EVENT DATE: 201708
